FAERS Safety Report 10633345 (Version 2)
Quarter: 2014Q4

REPORT INFORMATION
  Report Type: Spontaneous
  Country: US (occurrence: US)
  Receive Date: 20141205
  Receipt Date: 20141205
  Transmission Date: 20150529
  Serious: No
  Sender: FDA-Public Use
  Company Number: US-BRISTOL-MYERS SQUIBB COMPANY-20231775

PATIENT
  Age: 71 Year
  Sex: Female
  Weight: 82.99 kg

DRUGS (3)
  1. LANTUS [Suspect]
     Active Substance: INSULIN GLARGINE
     Dates: end: 20140218
  2. BYETTA [Suspect]
     Active Substance: EXENATIDE
     Route: 058
     Dates: start: 20140207
  3. INSULIN [Suspect]
     Active Substance: INSULIN NOS
     Dosage: 1DF: 50 UNITS NOS?AFTER BREAKFAST
     Route: 058

REACTIONS (2)
  - Blood glucose decreased [Not Recovered/Not Resolved]
  - Nausea [Not Recovered/Not Resolved]

NARRATIVE: CASE EVENT DATE: 20140212
